FAERS Safety Report 15105738 (Version 1)
Quarter: 2018Q3

REPORT INFORMATION
  Report Type: Spontaneous
  Country: IT (occurrence: IT)
  Receive Date: 20180704
  Receipt Date: 20180704
  Transmission Date: 20181010
  Serious: Yes (Other)
  Sender: FDA-Public Use
  Company Number: IT-TEVA-2018-IT-918575

PATIENT
  Age: 73 Year
  Sex: Female
  Weight: 58 kg

DRUGS (6)
  1. DILATREND [Concomitant]
     Active Substance: CARVEDILOL
     Route: 048
  2. CARBOPLATIN. [Suspect]
     Active Substance: CARBOPLATIN
     Indication: OVARIAN CANCER
     Route: 042
     Dates: start: 20160128
  3. VERSATIS 5% CEROTTO MEDICATO [Concomitant]
     Route: 062
  4. BLOPRESS 8 MG COMPRESSE [Concomitant]
     Route: 048
  5. CONTRAMAL 100 MG/ML GOCCE ORALI SOLUZIONE CON CONTAGOCCE [Concomitant]
     Route: 048
  6. DELTACORTENE 25 MG COMPRESSE [Concomitant]
     Route: 048

REACTIONS (5)
  - Cough [Recovered/Resolved]
  - Malaise [Recovered/Resolved]
  - Chest discomfort [Recovered/Resolved]
  - Hypoxia [Recovered/Resolved]
  - Erythema [Recovered/Resolved]

NARRATIVE: CASE EVENT DATE: 20180307
